FAERS Safety Report 7377251-X (Version None)
Quarter: 2011Q1

REPORT INFORMATION
  Report Type: 
  Country: None (occurrence: None)
  Receive Date: 20110315
  Receipt Date: 20110304
  Transmission Date: 20110831
  Serious: Yes (Hospitalization)
  Sender: FDA-Public Use
  Company Number: DAV-AE-AMP-11-006

PATIENT
  Sex: Male

DRUGS (5)
  1. AMPICILLIN [Suspect]
  2. FLUCONAZOLE [Concomitant]
  3. VANCOMYCIN [Concomitant]
  4. PIPERACILLIN AND TAZOBACTAM [Concomitant]
  5. CEFTRIAXONE [Concomitant]

REACTIONS (1)
  - DRUG RASH WITH EOSINOPHILIA AND SYSTEMIC SYMPTOMS [None]
